FAERS Safety Report 18255764 (Version 1)
Quarter: 2020Q3

REPORT INFORMATION
  Report Type: Other
  Country: US (occurrence: US)
  Receive Date: 20200910
  Receipt Date: 20200910
  Transmission Date: 20201103
  Serious: No
  Sender: FDA-Public Use
  Company Number: US-LEADIANT BIOSCIENCES INC-2019STPI000376

PATIENT

DRUGS (1)
  1. MATULANE [Suspect]
     Active Substance: PROCARBAZINE HYDROCHLORIDE
     Indication: BRAIN NEOPLASM MALIGNANT
     Dosage: 50 MILLIGRAM ONE CAPSULE 50MG EVERY 6 HOURS BEGINNING AT 6:00 AM ON DAY 3 OF EACH CYCLE FOR A TOTAL
     Route: 048
     Dates: start: 20190119

REACTIONS (1)
  - Nausea [Not Recovered/Not Resolved]
